FAERS Safety Report 17241182 (Version 1)
Quarter: 2020Q1

REPORT INFORMATION
  Report Type: Spontaneous
  Country: US (occurrence: US)
  Receive Date: 20200107
  Receipt Date: 20200107
  Transmission Date: 20200409
  Serious: No
  Sender: FDA-Public Use
  Company Number: NVSC2020US001605

PATIENT
  Age: 27 Year
  Sex: Female

DRUGS (7)
  1. BUPIVACAINE. [Suspect]
     Active Substance: BUPIVACAINE
     Indication: SPINAL ANAESTHESIA
     Dosage: 3 MG
     Route: 008
  2. OXYTOCIN. [Suspect]
     Active Substance: OXYTOCIN
     Indication: PRODUCT USED FOR UNKNOWN INDICATION
     Dosage: UNK, 15 U/250 ML OVER 6 HOURS
     Route: 041
  3. VASOPRESSIN. [Suspect]
     Active Substance: VASOPRESSIN
     Indication: BLOOD PRESSURE MANAGEMENT
     Dosage: 2 U / H
     Route: 042
  4. HEPARIN [Suspect]
     Active Substance: HEPARIN SODIUM
     Indication: ACTIVATED PARTIAL THROMBOPLASTIN TIME PROLONGED
     Dosage: 1300-1800 U / H. INFUSION WAS HELD FOR 4 HOURS TO ALLOW NORMALIZATION OF COAGULATION BEFORE PLACEMEN
     Route: 042
  5. NOREPINEPHRINE. [Suspect]
     Active Substance: NOREPINEPHRINE
     Indication: BLOOD PRESSURE MANAGEMENT
     Dosage: 2-4 UG/MIN
     Route: 042
  6. FENTANYL. [Suspect]
     Active Substance: FENTANYL
     Indication: SPINAL ANAESTHESIA
     Dosage: 10 UG
     Route: 008
  7. LIDOCAINE HYDROCHLORIDE. [Suspect]
     Active Substance: LIDOCAINE HYDROCHLORIDE
     Indication: SPINAL ANAESTHESIA
     Route: 065

REACTIONS (2)
  - Maternal exposure during pregnancy [Unknown]
  - Chest pain [Unknown]
